FAERS Safety Report 15835323 (Version 1)
Quarter: 2019Q1

REPORT INFORMATION
  Report Type: Spontaneous
  Country: IT (occurrence: IT)
  Receive Date: 20190117
  Receipt Date: 20190117
  Transmission Date: 20190417
  Serious: Yes (Other)
  Sender: FDA-Public Use
  Company Number: IT-AUROBINDO-AUR-APL-2019-000122

PATIENT
  Age: 65 Year
  Sex: Male

DRUGS (1)
  1. CLOPIDOGREL [Suspect]
     Active Substance: CLOPIDOGREL BISULFATE
     Indication: PERIPHERAL ARTERIAL OCCLUSIVE DISEASE
     Dosage: 75 MILLIGRAM, DAILY
     Route: 048
     Dates: start: 20161228, end: 20170131

REACTIONS (2)
  - Loss of consciousness [Unknown]
  - Generalised erythema [Unknown]

NARRATIVE: CASE EVENT DATE: 20170131
